FAERS Safety Report 21787099 (Version 1)
Quarter: 2022Q4

REPORT INFORMATION
  Report Type: Report from Study
  Country: US (occurrence: US)
  Receive Date: 20221228
  Receipt Date: 20221228
  Transmission Date: 20230113
  Serious: Yes (Hospitalization, Other)
  Sender: FDA-Public Use
  Company Number: US-002147023-NVSC2022US296414

PATIENT
  Sex: Male

DRUGS (1)
  1. ENTRESTO [Suspect]
     Active Substance: SACUBITRIL\VALSARTAN
     Indication: Product used for unknown indication
     Dosage: UNK
     Route: 065
     Dates: start: 202210

REACTIONS (6)
  - Renal impairment [Unknown]
  - Diverticulitis [Unknown]
  - Nausea [Unknown]
  - Vomiting [Recovering/Resolving]
  - Dehydration [Unknown]
  - Product availability issue [Unknown]
